FAERS Safety Report 8105842-7 (Version None)
Quarter: 2012Q1

REPORT INFORMATION
  Report Type: 
  Country: None (occurrence: None)
  Receive Date: 20120202
  Receipt Date: 20120124
  Transmission Date: 20120608
  Serious: Yes (Hospitalization)
  Sender: FDA-Public Use
  Company Number: BR-BIOGENIDEC-2011BI033508

PATIENT
  Age: 24 Year
  Sex: Female

DRUGS (1)
  1. TYSABRI [Suspect]
     Indication: MULTIPLE SCLEROSIS
     Route: 042
     Dates: start: 20110501

REACTIONS (6)
  - DYSPNOEA [None]
  - URINARY TRACT INFECTION [None]
  - WEIGHT DECREASED [None]
  - BLOOD URINE PRESENT [None]
  - HEADACHE [None]
  - DEPRESSION [None]
